FAERS Safety Report 9698531 (Version 1)
Quarter: 2013Q4

REPORT INFORMATION
  Report Type: Spontaneous
  Country: US (occurrence: US)
  Receive Date: 20131120
  Receipt Date: 20131120
  Transmission Date: 20140711
  Serious: Yes (Hospitalization)
  Sender: FDA-Public Use
  Company Number: US-GLAXOSMITHKLINE-A1049702A

PATIENT
  Sex: Female

DRUGS (7)
  1. ADVAIR [Suspect]
     Indication: ASTHMA
     Dosage: 1PUFF TWICE PER DAY
     Route: 055
  2. ALBUTEROL [Concomitant]
  3. OMEPRAZOLE [Concomitant]
  4. ESTRADIOL [Concomitant]
  5. LEVOTHYROXINE [Concomitant]
  6. LOVASTATIN [Concomitant]
  7. NIFEDIPINE [Concomitant]

REACTIONS (12)
  - Pneumonia [Not Recovered/Not Resolved]
  - Pertussis [Unknown]
  - Appendicectomy [Unknown]
  - Hip arthroplasty [Unknown]
  - Knee arthroplasty [Unknown]
  - Cough [Unknown]
  - Dysphonia [Unknown]
  - Pleurisy [Unknown]
  - Increased upper airway secretion [Unknown]
  - Dysphagia [Unknown]
  - Cataract [Unknown]
  - Ankle operation [Unknown]
